FAERS Safety Report 20327913 (Version 1)
Quarter: 2022Q1

REPORT INFORMATION
  Report Type: Spontaneous
  Country: US (occurrence: US)
  Receive Date: 20220112
  Receipt Date: 20220112
  Transmission Date: 20220423
  Serious: Yes (Other)
  Sender: FDA-Public Use
  Company Number: US-BEH-2022140471

PATIENT
  Sex: Female

DRUGS (24)
  1. HIZENTRA [Suspect]
     Active Substance: HUMAN IMMUNOGLOBULIN G
     Indication: Immunodeficiency common variable
     Dosage: 6 GRAM, QW
     Route: 058
  2. FUROSEMIDE [Concomitant]
     Active Substance: FUROSEMIDE
  3. MEDROL [Concomitant]
     Active Substance: METHYLPREDNISOLONE
  4. ERYTHROMYCIN BASE [Concomitant]
     Active Substance: ERYTHROMYCIN
  5. AMLODIPINE BESYLATE [Concomitant]
     Active Substance: AMLODIPINE BESYLATE
  6. LASIX [Concomitant]
     Active Substance: FUROSEMIDE
  7. POTASSIUM CHLORIDE [Concomitant]
     Active Substance: POTASSIUM CHLORIDE
  8. CELEBREX [Concomitant]
     Active Substance: CELECOXIB
  9. BENZONATATE [Concomitant]
     Active Substance: BENZONATATE
  10. LEVAQUIN [Concomitant]
     Active Substance: LEVOFLOXACIN
  11. PREDNISONE [Concomitant]
     Active Substance: PREDNISONE
  12. ZITHROMAX [Concomitant]
     Active Substance: AZITHROMYCIN DIHYDRATE
  13. VITAMIN D3 [Concomitant]
     Active Substance: CHOLECALCIFEROL
  14. VITAMIN B12 [Concomitant]
     Active Substance: CYANOCOBALAMIN
  15. CYANOCOBALAMIN [Concomitant]
     Active Substance: CYANOCOBALAMIN
  16. ADVAIR HFA [Concomitant]
     Active Substance: FLUTICASONE PROPIONATE\SALMETEROL XINAFOATE
  17. IRON [Concomitant]
     Active Substance: IRON
  18. LISINOPRIL [Concomitant]
     Active Substance: LISINOPRIL
  19. NIACIN [Concomitant]
     Active Substance: NIACIN
  20. PEPCID [Concomitant]
     Active Substance: FAMOTIDINE
  21. SIMVASTATIN [Concomitant]
     Active Substance: SIMVASTATIN
  22. SINGULAIR [Concomitant]
     Active Substance: MONTELUKAST SODIUM
  23. XOPENEX HFA [Concomitant]
     Active Substance: LEVALBUTEROL TARTRATE
  24. PHENTERMINE HYDROCHLORIDE [Concomitant]
     Active Substance: PHENTERMINE HYDROCHLORIDE

REACTIONS (1)
  - Pneumonia [Recovering/Resolving]
